FAERS Safety Report 10027044 (Version 2)
Quarter: 2014Q2

REPORT INFORMATION
  Report Type: Spontaneous
  Country: CH (occurrence: CH)
  Receive Date: 20140321
  Receipt Date: 20140505
  Transmission Date: 20141212
  Serious: Yes (Hospitalization)
  Sender: FDA-Public Use
  Company Number: CH-ABBVIE-14P-151-1211909-00

PATIENT
  Age: 76 Year
  Sex: Female
  Weight: 55 kg

DRUGS (14)
  1. HUMIRA [Suspect]
     Indication: RHEUMATOID ARTHRITIS
     Dates: end: 20140321
  2. CALCIMAGON D3 [Concomitant]
     Indication: MINERAL SUPPLEMENTATION
     Dosage: CALCII CARBONAS, CHOLECALCIFEROLUM; 1-0-0-0
  3. CEDUR [Concomitant]
     Indication: LIPID METABOLISM DISORDER
     Dosage: 0-0-1-0
  4. CREON 25000 [Concomitant]
     Indication: DYSPEPSIA
     Dosage: PANCREATIS PULVIS CORRESP. AMYLASUM, LIPASUM, PROTEASUM; 1-1-1-0, BEFORE MEALS
  5. DISTRANEURIN [Concomitant]
     Indication: SEDATIVE THERAPY
     Dosage: 0-0-0-1, 30 MIN BEFORE SLEEPING
     Dates: start: 20140220
  6. ENATEC [Concomitant]
     Indication: PRODUCT USED FOR UNKNOWN INDICATION
     Dosage: 1-0-0-0
  7. LEXOTANIL [Concomitant]
     Indication: ANXIOLYTIC THERAPY
     Dosage: 1-1-1-0, AT 8AM, 1PM, 6PM
  8. PANTOZOL [Concomitant]
     Indication: PRODUCT USED FOR UNKNOWN INDICATION
     Dosage: PANTOPRAZOLUM UT PANTOPRAZOLUM NATRICUM SESQUIHYDRICUM; 1-0-0-0
  9. REMERON [Concomitant]
     Indication: PRODUCT USED FOR UNKNOWN INDICATION
     Dosage: 0-0-1-0
     Dates: start: 20140301
  10. DAFALGAN [Concomitant]
     Indication: PRODUCT USED FOR UNKNOWN INDICATION
     Dosage: 1-1-1-1
  11. MOVICOL [Concomitant]
     Indication: PRODUCT USED FOR UNKNOWN INDICATION
     Dosage: SACHET; 1-0-0-0
  12. FOSAMAX [Concomitant]
     Indication: PRODUCT USED FOR UNKNOWN INDICATION
     Dosage: ONCE PER WEEK ON SUNDAY
  13. SAROTEN RETARD [Concomitant]
     Indication: PRODUCT USED FOR UNKNOWN INDICATION
     Dates: end: 20140225
  14. MIACALCIC [Concomitant]
     Indication: PRODUCT USED FOR UNKNOWN INDICATION
     Dates: start: 20140207, end: 20140307

REACTIONS (1)
  - Dementia [Not Recovered/Not Resolved]
